FAERS Safety Report 21207944 (Version 1)
Quarter: 2022Q3

REPORT INFORMATION
  Report Type: Spontaneous
  Country: US (occurrence: None)
  Receive Date: 20220811
  Receipt Date: 20220811
  Transmission Date: 20221026
  Serious: Yes (Death)
  Sender: FDA-Public Use
  Company Number: None

PATIENT
  Sex: Female

DRUGS (1)
  1. CARBIDOPA\MELEVODOPA [Suspect]
     Active Substance: CARBIDOPA\MELEVODOPA
     Indication: Parkinson^s disease
     Dosage: OTHER QUANTITY : 25/100 MG;?OTHER FREQUENCY : FIVE TIMES DAILY;?
     Route: 048
     Dates: start: 20220217

REACTIONS (1)
  - Death [None]
